FAERS Safety Report 13564233 (Version 4)
Quarter: 2019Q1

REPORT INFORMATION
  Report Type: Spontaneous
  Country: NL (occurrence: NL)
  Receive Date: 20170519
  Receipt Date: 20190111
  Transmission Date: 20190417
  Serious: Yes (Hospitalization, Other)
  Sender: FDA-Public Use
  Company Number: NL-PFIZER INC-2016334806

PATIENT
  Age: 41 Year
  Sex: Female
  Weight: 66 kg

DRUGS (6)
  1. SOMAVERT [Suspect]
     Active Substance: PEGVISOMANT
     Indication: ACROMEGALY
     Dosage: 80 MG, 1X/WEEK
     Route: 058
     Dates: start: 20160707, end: 20160911
  2. SOMAVERT [Suspect]
     Active Substance: PEGVISOMANT
     Dosage: 80 MG, 2X/WEEK
     Route: 058
     Dates: start: 20160912, end: 20170501
  3. SOMAVERT [Suspect]
     Active Substance: PEGVISOMANT
     Dosage: 80 MG, WEEKLY
     Route: 058
     Dates: start: 201710
  4. SOMAVERT [Suspect]
     Active Substance: PEGVISOMANT
     Dosage: 80 MG, 2X/WEEKLY
  5. CITALOPRAM [Concomitant]
     Active Substance: CITALOPRAM HYDROBROMIDE
     Dosage: 20 MG, 1X/DAY
     Route: 048
  6. SOMAVERT [Suspect]
     Active Substance: PEGVISOMANT
     Dosage: 80 MG, 3X/WEEKLY

REACTIONS (4)
  - Product use issue [Unknown]
  - Blood pressure increased [Unknown]
  - Pituitary tumour [Unknown]
  - Headache [Recovered/Resolved]

NARRATIVE: CASE EVENT DATE: 20160707
